FAERS Safety Report 24569505 (Version 1)
Quarter: 2024Q4

REPORT INFORMATION
  Report Type: Spontaneous
  Country: US (occurrence: None)
  Receive Date: 20241030
  Receipt Date: 20241030
  Transmission Date: 20250115
  Serious: Yes (Other)
  Sender: Public
  Company Number: None

PATIENT
  Age: 53 Year
  Sex: Male
  Weight: 82.8 kg

DRUGS (1)
  1. XTANDI [Suspect]
     Active Substance: ENZALUTAMIDE
     Dosage: 160 MG DAILY ORAL
     Route: 048

REACTIONS (5)
  - Arthralgia [None]
  - Myalgia [None]
  - Dizziness [None]
  - Hypotension [None]
  - Exercise tolerance decreased [None]
